FAERS Safety Report 9430955 (Version 1)
Quarter: 2013Q3

REPORT INFORMATION
  Report Type: Spontaneous
  Country: US (occurrence: US)
  Receive Date: 20130730
  Receipt Date: 20130730
  Transmission Date: 20140515
  Serious: Yes (Other)
  Sender: FDA-Public Use
  Company Number: US-ABBOTT-13P-163-1125266-00

PATIENT
  Age: 70 Year
  Sex: Male
  Weight: 76.27 kg

DRUGS (2)
  1. ANDROGEL [Suspect]
     Indication: BLOOD TESTOSTERONE DECREASED
     Dates: start: 201304, end: 201307
  2. ANDROGEL [Suspect]
     Dates: start: 201307

REACTIONS (6)
  - Laceration [Recovering/Resolving]
  - Hypertension [Not Recovered/Not Resolved]
  - Libido disorder [Not Recovered/Not Resolved]
  - Fall [Recovered/Resolved]
  - Head injury [Recovered/Resolved]
  - Eyelid ptosis [Not Recovered/Not Resolved]
